FAERS Safety Report 6014322-4 (Version None)
Quarter: 2008Q4

REPORT INFORMATION
  Report Type: 
  Country: None (occurrence: None)
  Receive Date: 20081219
  Receipt Date: 20080404
  Transmission Date: 20090506
  Serious: No
  Sender: FDA-Public Use
  Company Number: A0722613A

PATIENT
  Age: 84 Year
  Sex: Male

DRUGS (2)
  1. AVODART [Suspect]
     Dosage: 1CAP IN THE MORNING
     Route: 048
     Dates: start: 20080401
  2. MULTIPLE MEDICATION [Concomitant]

REACTIONS (2)
  - DIZZINESS [None]
  - DYSPEPSIA [None]
